FAERS Safety Report 19598253 (Version 1)
Quarter: 2021Q3

REPORT INFORMATION
  Report Type: Spontaneous
  Country: US (occurrence: US)
  Receive Date: 20210722
  Receipt Date: 20210722
  Transmission Date: 20211014
  Serious: No
  Sender: FDA-Public Use
  Company Number: None

PATIENT
  Age: 21 Year
  Sex: Female

DRUGS (1)
  1. MORPHINE (MORPHINE S04 10MG/ML INJ) [Suspect]
     Active Substance: MORPHINE SULFATE
     Indication: PAIN
     Dates: start: 20210617, end: 20210617

REACTIONS (6)
  - Anaphylactic reaction [None]
  - Urticaria [None]
  - Dyspnoea [None]
  - Stridor [None]
  - Wheezing [None]
  - Tachycardia [None]

NARRATIVE: CASE EVENT DATE: 20210617
